FAERS Safety Report 23060651 (Version 1)
Quarter: 2023Q4

REPORT INFORMATION
  Report Type: Spontaneous
  Country: CN (occurrence: CN)
  Receive Date: 20231012
  Receipt Date: 20231012
  Transmission Date: 20240110
  Serious: Yes (Hospitalization, Disabling, Other)
  Sender: FDA-Public Use
  Company Number: CN-009507513-2310CHN003541

PATIENT
  Age: 45 Year
  Sex: Female
  Weight: 66 kg

DRUGS (52)
  1. KEYTRUDA [Suspect]
     Active Substance: PEMBROLIZUMAB
     Indication: Lung neoplasm malignant
     Dosage: 200 MG, D1
     Dates: start: 20220119, end: 20220119
  2. KEYTRUDA [Suspect]
     Active Substance: PEMBROLIZUMAB
     Dosage: 200 MG, D1
     Dates: start: 20220210, end: 20220210
  3. KEYTRUDA [Suspect]
     Active Substance: PEMBROLIZUMAB
     Dosage: 200 MG, D1
     Dates: start: 20220303, end: 20220303
  4. KEYTRUDA [Suspect]
     Active Substance: PEMBROLIZUMAB
     Dosage: 200 MG, D1
     Dates: start: 20220323, end: 20220323
  5. KEYTRUDA [Suspect]
     Active Substance: PEMBROLIZUMAB
     Dosage: 200 MG, D1
     Dates: start: 20220414, end: 20220414
  6. KEYTRUDA [Suspect]
     Active Substance: PEMBROLIZUMAB
     Dosage: 200 MG, D1
     Dates: start: 20220525, end: 20220525
  7. KEYTRUDA [Suspect]
     Active Substance: PEMBROLIZUMAB
     Dosage: 200 MG, D1
     Dates: start: 20220615, end: 20220615
  8. KEYTRUDA [Suspect]
     Active Substance: PEMBROLIZUMAB
     Dosage: 200 MG, D1
     Dates: start: 20220713, end: 20220713
  9. KEYTRUDA [Suspect]
     Active Substance: PEMBROLIZUMAB
     Dosage: 200 MG, D1
     Dates: start: 20220804, end: 20220804
  10. KEYTRUDA [Suspect]
     Active Substance: PEMBROLIZUMAB
     Dosage: 200 MG, D1
     Dates: start: 20220825, end: 20220825
  11. KEYTRUDA [Suspect]
     Active Substance: PEMBROLIZUMAB
     Dosage: 200 MG, D1
     Dates: start: 20220914, end: 20220914
  12. KEYTRUDA [Suspect]
     Active Substance: PEMBROLIZUMAB
     Dosage: 200 MG, D1
     Dates: start: 20221006, end: 20221006
  13. KEYTRUDA [Suspect]
     Active Substance: PEMBROLIZUMAB
     Dosage: 200 MG, D1
     Dates: start: 20221102, end: 20221102
  14. KEYTRUDA [Suspect]
     Active Substance: PEMBROLIZUMAB
     Dosage: 200 MG, D1
     Dates: start: 20221124, end: 20221124
  15. KEYTRUDA [Suspect]
     Active Substance: PEMBROLIZUMAB
     Dosage: 200 MG, D1
     Dates: start: 20221214, end: 20221214
  16. KEYTRUDA [Suspect]
     Active Substance: PEMBROLIZUMAB
     Dosage: 200 MG, D1
     Dates: start: 20230117, end: 20230117
  17. KEYTRUDA [Suspect]
     Active Substance: PEMBROLIZUMAB
     Dosage: 200 MG, D1
     Dates: start: 20230202, end: 20230202
  18. KEYTRUDA [Suspect]
     Active Substance: PEMBROLIZUMAB
     Dosage: 200 MG, D1
     Dates: start: 20230301, end: 20230301
  19. KEYTRUDA [Suspect]
     Active Substance: PEMBROLIZUMAB
     Dosage: 200 MG, D1
     Dates: start: 20230322, end: 20230322
  20. KEYTRUDA [Suspect]
     Active Substance: PEMBROLIZUMAB
     Dosage: 200 MG, D1
     Dates: start: 20230407, end: 20230407
  21. KEYTRUDA [Suspect]
     Active Substance: PEMBROLIZUMAB
     Dosage: 200 MG, D1
     Dates: start: 20230503, end: 20230503
  22. KEYTRUDA [Suspect]
     Active Substance: PEMBROLIZUMAB
     Dosage: 200 MG, D1
     Dates: start: 20230607, end: 20230607
  23. KEYTRUDA [Suspect]
     Active Substance: PEMBROLIZUMAB
     Dosage: 200 MG, D1
     Dates: start: 20230628, end: 20230628
  24. KEYTRUDA [Suspect]
     Active Substance: PEMBROLIZUMAB
     Dosage: 200 MG, D1
     Route: 041
     Dates: start: 20230719, end: 20230719
  25. ALIMTA [Suspect]
     Active Substance: PEMETREXED DISODIUM
     Indication: Lung neoplasm malignant
     Dosage: 0.8 (UNITS NOT PROVIDED), D1
     Dates: start: 20220119, end: 20220119
  26. ALIMTA [Suspect]
     Active Substance: PEMETREXED DISODIUM
     Dosage: 0.8 (UNITS NOT PROVIDED), D1
     Dates: start: 20220210, end: 20220210
  27. ALIMTA [Suspect]
     Active Substance: PEMETREXED DISODIUM
     Dosage: 0.8 (UNITS NOT PROVIDED), D1
     Dates: start: 20220303, end: 20220303
  28. ALIMTA [Suspect]
     Active Substance: PEMETREXED DISODIUM
     Dosage: 0.8 (UNITS NOT PROVIDED), D1
     Dates: start: 20220323, end: 20220323
  29. ALIMTA [Suspect]
     Active Substance: PEMETREXED DISODIUM
     Dosage: 0.8 (UNITS NOT PROVIDED), D1
     Dates: start: 20220414, end: 20220414
  30. ALIMTA [Suspect]
     Active Substance: PEMETREXED DISODIUM
     Dosage: 0.8 (UNITS NOT PROVIDED), D1
     Dates: start: 20220525, end: 20220525
  31. ALIMTA [Suspect]
     Active Substance: PEMETREXED DISODIUM
     Dosage: 0.8 (UNITS NOT PROVIDED), D1
     Dates: start: 20220615, end: 20220615
  32. ALIMTA [Suspect]
     Active Substance: PEMETREXED DISODIUM
     Dosage: 0.8 (UNITS NOT PROVIDED), D1
     Dates: start: 20220713, end: 20220713
  33. ALIMTA [Suspect]
     Active Substance: PEMETREXED DISODIUM
     Dosage: 0.8 (UNITS NOT PROVIDED), D1
     Dates: start: 20220804, end: 20220804
  34. ALIMTA [Suspect]
     Active Substance: PEMETREXED DISODIUM
     Dosage: 0.8 (UNITS NOT PROVIDED), D1
     Dates: start: 20220825, end: 20220825
  35. ALIMTA [Suspect]
     Active Substance: PEMETREXED DISODIUM
     Dosage: 0.8 (UNITS NOT PROVIDED), D1
     Dates: start: 20220914, end: 20220914
  36. ALIMTA [Suspect]
     Active Substance: PEMETREXED DISODIUM
     Dosage: 0.8 (UNITS NOT PROVIDED), D1
     Dates: start: 20221006, end: 20221006
  37. ALIMTA [Suspect]
     Active Substance: PEMETREXED DISODIUM
     Dosage: 0.8 (UNITS NOT PROVIDED), D1
     Dates: start: 20221102, end: 20221102
  38. ALIMTA [Suspect]
     Active Substance: PEMETREXED DISODIUM
     Dosage: 0.8 (UNITS NOT PROVIDED), D1
     Dates: start: 20221124, end: 20221124
  39. ALIMTA [Suspect]
     Active Substance: PEMETREXED DISODIUM
     Dosage: 0.8 (UNITS NOT PROVIDED), D1
     Dates: start: 20221214, end: 20221214
  40. ALIMTA [Suspect]
     Active Substance: PEMETREXED DISODIUM
     Dosage: 0.8 (UNITS NOT PROVIDED), D1
     Dates: start: 20230117, end: 20230117
  41. ALIMTA [Suspect]
     Active Substance: PEMETREXED DISODIUM
     Dosage: 0.8 (UNITS NOT PROVIDED), D1
     Dates: start: 20230202, end: 20230202
  42. ALIMTA [Suspect]
     Active Substance: PEMETREXED DISODIUM
     Dosage: 0.8 (UNITS NOT PROVIDED), D1
     Dates: start: 20230301, end: 20230301
  43. ALIMTA [Suspect]
     Active Substance: PEMETREXED DISODIUM
     Dosage: 0.8 (UNITS NOT PROVIDED), D1
     Dates: start: 20230322, end: 20230322
  44. ALIMTA [Suspect]
     Active Substance: PEMETREXED DISODIUM
     Dosage: 0.8 (UNITS NOT PROVIDED), D1
     Dates: start: 20230407, end: 20230407
  45. ALIMTA [Suspect]
     Active Substance: PEMETREXED DISODIUM
     Dosage: 0.8 (UNITS NOT PROVIDED), D1
     Dates: start: 20230503, end: 20230503
  46. ALIMTA [Suspect]
     Active Substance: PEMETREXED DISODIUM
     Dosage: 0.8 (UNITS NOT PROVIDED), D1
     Dates: start: 20230607, end: 20230607
  47. ALIMTA [Suspect]
     Active Substance: PEMETREXED DISODIUM
     Dosage: 0.8 (UNITS NOT PROVIDED), D1
     Dates: start: 20230628, end: 20230628
  48. ALIMTA [Suspect]
     Active Substance: PEMETREXED DISODIUM
     Dosage: 0.8 GRAM, D1
     Route: 041
     Dates: start: 20230719, end: 20230719
  49. CARBOPLATIN [Suspect]
     Active Substance: CARBOPLATIN
     Indication: Lung neoplasm malignant
     Dosage: 550 MG, D1
     Dates: start: 20220119, end: 20220119
  50. CARBOPLATIN [Suspect]
     Active Substance: CARBOPLATIN
     Dosage: 550 MG, D1
     Dates: start: 20220210, end: 20220210
  51. CARBOPLATIN [Suspect]
     Active Substance: CARBOPLATIN
     Dosage: 550 MG, D1
     Dates: start: 20220303, end: 20220303
  52. CARBOPLATIN [Suspect]
     Active Substance: CARBOPLATIN
     Dosage: 550 MG, D1
     Dates: start: 20220323, end: 20220323

REACTIONS (23)
  - Cystitis [Recovering/Resolving]
  - Chemical cystitis [Recovering/Resolving]
  - Urinary tract infection [Recovering/Resolving]
  - Malignant neoplasm progression [Unknown]
  - Autoimmune nephritis [Recovering/Resolving]
  - Urinary tract infection [Unknown]
  - Inappropriate schedule of product administration [Unknown]
  - Inappropriate schedule of product administration [Unknown]
  - Inappropriate schedule of product administration [Unknown]
  - Inappropriate schedule of product administration [Unknown]
  - Inappropriate schedule of product administration [Unknown]
  - Inappropriate schedule of product administration [Unknown]
  - Inappropriate schedule of product administration [Unknown]
  - Inappropriate schedule of product administration [Unknown]
  - Inappropriate schedule of product administration [Unknown]
  - Inappropriate schedule of product administration [Unknown]
  - Inappropriate schedule of product administration [Unknown]
  - Inappropriate schedule of product administration [Unknown]
  - Inappropriate schedule of product administration [Unknown]
  - Inappropriate schedule of product administration [Unknown]
  - Inappropriate schedule of product administration [Unknown]
  - Inappropriate schedule of product administration [Unknown]
  - Inappropriate schedule of product administration [Unknown]

NARRATIVE: CASE EVENT DATE: 20220210
